FAERS Safety Report 5057859-7 (Version None)
Quarter: 2006Q3

REPORT INFORMATION
  Report Type: 
  Country: None (occurrence: None)
  Receive Date: 20060721
  Receipt Date: 20060317
  Transmission Date: 20061208
  Serious: No
  Sender: FDA-Public Use
  Company Number: US-GLAXOSMITHKLINE-A0598038A

PATIENT
  Age: 82 Year
  Sex: Male

DRUGS (10)
  1. AVANDIA [Suspect]
     Dosage: 4MG PER DAY
     Route: 048
  2. NEXIUM [Concomitant]
  3. GLIPIZIDE [Concomitant]
  4. FEXOFENADINE [Concomitant]
  5. DETROL [Concomitant]
  6. QUINAPRIL [Concomitant]
  7. DOXAZOSIN [Concomitant]
  8. CRESTOR [Concomitant]
  9. PROSCAR [Concomitant]
  10. FUROSEMIDE [Concomitant]

REACTIONS (4)
  - BLOOD GLUCOSE FLUCTUATION [None]
  - DIZZINESS [None]
  - RASH [None]
  - RASH PRURITIC [None]
